FAERS Safety Report 6139374-2 (Version None)
Quarter: 2009Q2

REPORT INFORMATION
  Report Type: 
  Country: None (occurrence: None)
  Receive Date: 20090401
  Receipt Date: 20090318
  Transmission Date: 20091009
  Serious: Yes (Hospitalization)
  Sender: FDA-Public Use
  Company Number: US-ROCHE-622536

PATIENT
  Sex: Male
  Weight: 66.7 kg

DRUGS (1)
  1. CAPECITABINE [Suspect]
     Dosage: DOSAGE: 1000 MG IN AM AND 1000 MG IN PM
     Route: 048
     Dates: start: 20081125, end: 20090313

REACTIONS (3)
  - ASCITES [None]
  - DISEASE PROGRESSION [None]
  - DRUG INEFFECTIVE [None]
